FAERS Safety Report 19710605 (Version 1)
Quarter: 2021Q3

REPORT INFORMATION
  Report Type: Spontaneous
  Country: US (occurrence: US)
  Receive Date: 20210817
  Receipt Date: 20210817
  Transmission Date: 20211014
  Serious: No
  Sender: FDA-Public Use
  Company Number: US-JNJFOC-20210817502

PATIENT
  Age: 82 Year
  Sex: Female

DRUGS (3)
  1. METFORMIN [Concomitant]
     Active Substance: METFORMIN HYDROCHLORIDE
  2. QUINAPRIL. [Concomitant]
     Active Substance: QUINAPRIL
  3. NIZORAL [Suspect]
     Active Substance: KETOCONAZOLE
     Indication: FUNGAL INFECTION
     Dosage: USED 4 TIMES LEAVING 4 TO 5 DAYS BETWEEN USES
     Route: 061
     Dates: start: 202106, end: 20210710

REACTIONS (4)
  - Off label use [Unknown]
  - Intentional product misuse [Unknown]
  - Hair texture abnormal [Recovered/Resolved]
  - Therapeutic response unexpected [Unknown]

NARRATIVE: CASE EVENT DATE: 202106
